FAERS Safety Report 9404038 (Version 1)
Quarter: 2013Q3

REPORT INFORMATION
  Report Type: Spontaneous
  Country: JO (occurrence: JO)
  Receive Date: 20130717
  Receipt Date: 20130717
  Transmission Date: 20140515
  Serious: Yes (Life-Threatening, Hospitalization)
  Sender: FDA-Public Use
  Company Number: JO-JNJFOC-20130602065

PATIENT
  Age: 19 Year
  Sex: Female
  Weight: 60 kg

DRUGS (4)
  1. REMICADE [Suspect]
     Indication: COLITIS ULCERATIVE
     Route: 042
     Dates: start: 201201
  2. REMICADE [Suspect]
     Indication: COLITIS ULCERATIVE
     Route: 042
     Dates: start: 201301, end: 201306
  3. PENTASA [Suspect]
     Indication: COLITIS ULCERATIVE
     Route: 065
  4. IMURAN [Suspect]
     Indication: COLITIS ULCERATIVE
     Route: 065

REACTIONS (4)
  - Hepatitis [Not Recovered/Not Resolved]
  - Disseminated intravascular coagulation [Not Recovered/Not Resolved]
  - Pancreatitis [Not Recovered/Not Resolved]
  - Varicella [Recovered/Resolved]
